FAERS Safety Report 4979445-7 (Version None)
Quarter: 2006Q2

REPORT INFORMATION
  Report Type: 
  Country: None (occurrence: None)
  Receive Date: 20060421
  Receipt Date: 20060413
  Transmission Date: 20061013
  Serious: Yes (Hospitalization)
  Sender: FDA-Public Use
  Company Number: US-JNJFOC-20060403759

PATIENT
  Sex: Female
  Weight: 63.5 kg

DRUGS (15)
  1. DURAGESIC-100 [Suspect]
     Route: 062
  2. MICRONASE [Concomitant]
     Route: 048
  3. HUMULIN N 100 [Concomitant]
     Dosage: 40 UNITS/ML, ONCE EVERY 24 HOURS IN PM
     Route: 058
  4. HUMULIN N 100 [Concomitant]
     Dosage: 250 UNITS/ML, ONCE EVERY 24 HOURS IN AM
     Route: 058
  5. ZETIA [Concomitant]
     Route: 048
  6. LOPID [Concomitant]
     Route: 048
  7. LOPRESSOR [Concomitant]
     Indication: ATRIAL FIBRILLATION
     Route: 048
  8. SYNTHROID [Concomitant]
     Indication: HYPOTHYROIDISM
     Route: 048
  9. NEURONTIN [Concomitant]
     Indication: NEUROPATHY
     Route: 048
  10. PROZAC [Concomitant]
     Indication: ANTIDEPRESSANT THERAPY
     Route: 048
  11. WELLBUTRIN SR [Concomitant]
     Indication: ANTIDEPRESSANT THERAPY
     Route: 048
  12. LYRICA [Concomitant]
     Indication: NEUROPATHY
     Route: 048
  13. AVALIDE [Concomitant]
     Route: 048
  14. AVALIDE [Concomitant]
     Dosage: 150/12.5 MG, ONCE EVERY 24 HOURS
     Route: 048
  15. PERSANTINE [Concomitant]
     Indication: ANTICOAGULANT THERAPY
     Route: 048

REACTIONS (4)
  - ABDOMINAL PAIN UPPER [None]
  - ANAEMIA [None]
  - DYSPNOEA [None]
  - PANCREATITIS [None]
